FAERS Safety Report 19694211 (Version 2)
Quarter: 2021Q3

REPORT INFORMATION
  Report Type: Report from Study
  Country: CN (occurrence: CN)
  Receive Date: 20210812
  Receipt Date: 20210922
  Transmission Date: 20211014
  Serious: Yes (Hospitalization)
  Sender: FDA-Public Use
  Company Number: NVSC2021CN175343

PATIENT
  Age: 59 Year
  Sex: Female
  Weight: 46 kg

DRUGS (5)
  1. CAPECITABINE. [Suspect]
     Active Substance: CAPECITABINE
     Dosage: (2000 MG/ DAY ON ODD DAYS AND 2500 MG/ DAY ON EVEN DAYS)
     Route: 048
     Dates: start: 20210309, end: 20210530
  2. CAPECITABINE. [Suspect]
     Active Substance: CAPECITABINE
     Indication: BREAST CANCER
     Dosage: 1500 MG, BID (1500 MG IN THE MORNING, 1500 MG IN THE EVENING)
     Route: 048
     Dates: start: 20201126, end: 20210308
  3. TYKERB [Suspect]
     Active Substance: LAPATINIB DITOSYLATE
     Dosage: 1000 MG, QD
     Route: 048
     Dates: start: 20210309
  4. TYKERB [Suspect]
     Active Substance: LAPATINIB DITOSYLATE
     Indication: BREAST CANCER
     Dosage: 1500 MG, QD (STRENGTH 250 MG, TABLET)
     Route: 048
     Dates: start: 20201126, end: 20210308
  5. CAPECITABINE. [Suspect]
     Active Substance: CAPECITABINE
     Dosage: 1500 MG, QD (1000 MG IN THE MORNING, 500 MG IN THE EVENING)
     Route: 048
     Dates: start: 20210601, end: 20210718

REACTIONS (3)
  - Laryngeal mass [Recovered/Resolved]
  - Palmar-plantar erythrodysaesthesia syndrome [Unknown]
  - Dysphonia [Unknown]

NARRATIVE: CASE EVENT DATE: 20210620
